FAERS Safety Report 7079226-7 (Version None)
Quarter: 2010Q4

REPORT INFORMATION
  Report Type: 
  Country: None (occurrence: None)
  Receive Date: 20101102
  Receipt Date: 20101027
  Transmission Date: 20110411
  Serious: Yes (Hospitalization)
  Sender: FDA-Public Use
  Company Number: NL-ROCHE-736261

PATIENT
  Sex: Male

DRUGS (7)
  1. CAPECITABINE [Suspect]
     Indication: COLORECTAL CANCER
     Dosage: DATE OF LAST CYCLE: 07 JULY 2010
     Route: 048
     Dates: start: 20090128
  2. CAPECITABINE [Suspect]
     Route: 048
  3. BEVACIZUMAB [Suspect]
     Indication: COLORECTAL CANCER
     Dosage: DATE OF LAST CYCLE: 07 JULY 2010
     Route: 042
     Dates: start: 20090128
  4. BEVACIZUMAB [Suspect]
     Route: 042
  5. OXALIPLATIN [Suspect]
     Indication: COLORECTAL CANCER
     Dosage: DATE OF LAST DOSE: 26 MAY 2010
     Route: 042
     Dates: start: 20100208
  6. PREDNISONE [Suspect]
     Route: 065
  7. PREDNISOLON [Concomitant]
     Indication: HYPEREOSINOPHILIC SYNDROME

REACTIONS (1)
  - OSTEONECROSIS [None]
